FAERS Safety Report 5679982-6 (Version None)
Quarter: 2008Q1

REPORT INFORMATION
  Report Type: 
  Country: None (occurrence: None)
  Receive Date: 20080325
  Receipt Date: 20080325
  Transmission Date: 20080703
  Serious: Yes (Other)
  Sender: FDA-Public Use
  Company Number: None

PATIENT
  Sex: Male
  Weight: 78.0187 kg

DRUGS (2)
  1. ETHYOL [Suspect]
     Indication: DRY MOUTH
     Dosage: 500 MG/ 1 VIAL DAILY SUBQ 5 INJ. SINCE 3/3/08
     Route: 058
     Dates: start: 20080303
  2. ETHYOL [Suspect]
     Indication: MUCOSAL INFLAMMATION
     Dosage: 500 MG/ 1 VIAL DAILY SUBQ 5 INJ. SINCE 3/3/08
     Route: 058
     Dates: start: 20080303

REACTIONS (3)
  - DYSPNOEA [None]
  - NAUSEA [None]
  - VOMITING [None]
